FAERS Safety Report 24374913 (Version 1)
Quarter: 2024Q3

REPORT INFORMATION
  Report Type: Spontaneous
  Country: ES (occurrence: ES)
  Receive Date: 20240927
  Receipt Date: 20240927
  Transmission Date: 20241016
  Serious: Yes (Life-Threatening, Hospitalization, Other)
  Sender: MERCK
  Company Number: None

PATIENT
  Age: 25 Year
  Sex: Male

DRUGS (1)
  1. ONCOTICE [Suspect]
     Active Substance: BACILLUS CALMETTE-GUERIN SUBSTRAIN TICE LIVE ANTIGEN
     Indication: Bladder neoplasm
     Dosage: UNKNOWN
     Route: 043
     Dates: start: 20240620

REACTIONS (2)
  - Sepsis [Not Recovered/Not Resolved]
  - Mycobacterial infection [Not Recovered/Not Resolved]

NARRATIVE: CASE EVENT DATE: 20240621
